FAERS Safety Report 21065683 (Version 2)
Quarter: 2022Q3

REPORT INFORMATION
  Report Type: Spontaneous
  Country: US (occurrence: US)
  Receive Date: 20220711
  Receipt Date: 20220804
  Transmission Date: 20221026
  Serious: No
  Sender: FDA-Public Use
  Company Number: US-BRISTOL-MYERS SQUIBB COMPANY-2022-071588

PATIENT
  Age: 83 Year
  Sex: Female

DRUGS (1)
  1. REVLIMID [Suspect]
     Active Substance: LENALIDOMIDE
     Indication: Product used for unknown indication
     Dosage: FREQUENCY- OTHER
     Route: 048
     Dates: start: 202205, end: 202206

REACTIONS (6)
  - Weight decreased [Unknown]
  - Blood potassium decreased [Unknown]
  - White blood cell count decreased [Unknown]
  - Blood calcium decreased [Unknown]
  - Decreased appetite [Unknown]
  - Full blood count decreased [Unknown]

NARRATIVE: CASE EVENT DATE: 20220519
